FAERS Safety Report 15387492 (Version 3)
Quarter: 2019Q2

REPORT INFORMATION
  Report Type: Report from Study
  Country: JP (occurrence: JP)
  Receive Date: 20180914
  Receipt Date: 20190403
  Transmission Date: 20190711
  Serious: Yes (Hospitalization, Other)
  Sender: FDA-Public Use
  Company Number: JP-SA-2018SA250566

PATIENT
  Age: 69 Year
  Sex: Male
  Weight: 43 kg

DRUGS (24)
  1. VANDETANIB. [Suspect]
     Active Substance: VANDETANIB
     Dosage: 200 MG, QD
     Route: 048
     Dates: start: 20170415, end: 20170524
  2. THYRADIN [Concomitant]
     Active Substance: LEVOTHYROXINE
     Indication: HYPOTHYROIDISM
     Dosage: DAILY DOSE: 75 UG
     Route: 048
  3. BIOFERMIN R [Concomitant]
     Active Substance: DIETARY SUPPLEMENT\PROBIOTICS
     Indication: DIARRHOEA
     Dosage: DAILY DOSE: 18 MG
     Route: 048
     Dates: start: 20160924
  4. UREA. [Concomitant]
     Active Substance: UREA
     Indication: PROPHYLAXIS
     Dosage: PRN
     Route: 065
  5. VANDETANIB. [Suspect]
     Active Substance: VANDETANIB
     Dosage: 100 MG, QD
     Route: 048
     Dates: start: 20170622, end: 20170707
  6. AMLODIPINE BESILATE [Suspect]
     Active Substance: AMLODIPINE BESYLATE
     Indication: HYPERTENSION
     Dosage: 5 MG DAILY
     Route: 048
     Dates: start: 20160924
  7. CLARITHROMYCIN. [Suspect]
     Active Substance: CLARITHROMYCIN
     Indication: ACNE
     Dosage: 400 MG DAILY
     Route: 048
     Dates: start: 20180609, end: 20180721
  8. VIBRAMYCIN AKNE [Suspect]
     Active Substance: DOXYCYCLINE
     Indication: ACNE
     Dosage: 100 MG DAILY
     Route: 048
     Dates: start: 20180804
  9. VALSARTAN. [Suspect]
     Active Substance: VALSARTAN
     Dosage: DAILY DOSE: 40 MG
     Route: 048
  10. XYZAL [Suspect]
     Active Substance: LEVOCETIRIZINE DIHYDROCHLORIDE
     Indication: RASH
     Dosage: PRN: 5 MG (PATIENT-CONTROLLED)
     Route: 048
     Dates: start: 20161022
  11. LOPERAMIDE HYDROCHLORIDE. [Concomitant]
     Active Substance: LOPERAMIDE HYDROCHLORIDE
     Indication: DIARRHOEA
     Dosage: PRN: 3 MG
     Route: 048
     Dates: start: 20160901, end: 20170401
  12. VANDETANIB. [Suspect]
     Active Substance: VANDETANIB
     Dosage: 200 MG, QD
     Route: 048
     Dates: start: 20170105, end: 20170331
  13. VALSARTAN. [Suspect]
     Active Substance: VALSARTAN
     Indication: HYPERTENSION
     Dosage: DAILY DOSE: 40 MG
     Route: 048
     Dates: start: 20160915
  14. VALSARTAN. [Suspect]
     Active Substance: VALSARTAN
     Dosage: DAILY DOSE: 80 MG
     Route: 048
  15. DEXCHLORPHENIRAMINE MALEATE. [Suspect]
     Active Substance: DEXCHLORPHENIRAMINE MALEATE
     Indication: ACNE
     Dosage: PRN: 2 MG (PATIENT-CONTROLLED)
     Route: 048
     Dates: start: 20161029
  16. DEXCHLORPHENIRAMINE MALEATE. [Suspect]
     Active Substance: DEXCHLORPHENIRAMINE MALEATE
     Indication: ACNE
     Dosage: 12 MG DAILY
     Route: 048
     Dates: start: 20170624
  17. VANDETANIB. [Suspect]
     Active Substance: VANDETANIB
     Indication: MEDULLARY THYROID CANCER
     Dosage: 300 MG, QD
     Route: 048
     Dates: start: 20160831, end: 20161111
  18. VANDETANIB. [Suspect]
     Active Substance: VANDETANIB
     Dosage: 100 MG, QD
     Route: 048
     Dates: start: 20170617, end: 20170620
  19. MINOCYCLINE HYDROCHLORIDE. [Suspect]
     Active Substance: MINOCYCLINE HYDROCHLORIDE
     Indication: ACNE
     Dosage: 100 MG DAILY
     Route: 048
     Dates: start: 20161029
  20. ALFACALCIDOL [Concomitant]
     Active Substance: ALFACALCIDOL
     Indication: HYPOPARATHYROIDISM
     Dosage: DAILY DOSE: 0.5 UG
     Route: 048
  21. VANDETANIB. [Suspect]
     Active Substance: VANDETANIB
     Dosage: 300 MG, QD
     Route: 048
     Dates: start: 20161119, end: 20161223
  22. VANDETANIB. [Suspect]
     Active Substance: VANDETANIB
     Dosage: 100 MG, QD
     Route: 048
     Dates: start: 20170722, end: 20180803
  23. DOMPERIDONE [Suspect]
     Active Substance: DOMPERIDONE
     Indication: NAUSEA
     Dosage: 10 MG DAILY
     Route: 048
     Dates: start: 20161229
  24. HIRUDOID [Concomitant]
     Active Substance: GLYCOSAMINOGLYCANS
     Indication: PROPHYLAXIS
     Dosage: PRN
     Route: 065

REACTIONS (14)
  - Dehydration [Recovered/Resolved]
  - Renal impairment [Recovered/Resolved]
  - Blood creatinine increased [Recovered/Resolved]
  - Proteinuria [Recovering/Resolving]
  - Pruritus [Recovering/Resolving]
  - Decreased appetite [Recovered/Resolved]
  - Hypertension [Recovering/Resolving]
  - Diarrhoea [Recovered/Resolved]
  - Acne [Recovering/Resolving]
  - Nausea [Recovered/Resolved]
  - Blood urine present [Recovering/Resolving]
  - Rash [Recovered/Resolved]
  - Nausea [Recovered/Resolved]
  - Renal impairment [Recovered/Resolved]

NARRATIVE: CASE EVENT DATE: 20160906
